FAERS Safety Report 13134304 (Version 6)
Quarter: 2017Q2

REPORT INFORMATION
  Report Type: Spontaneous
  Country: US (occurrence: US)
  Receive Date: 20170120
  Receipt Date: 20170605
  Transmission Date: 20170830
  Serious: Yes (Hospitalization, Disabling, Other)
  Sender: FDA-Public Use
  Company Number: US-009507513-1701USA008717

PATIENT
  Sex: Female
  Weight: 83.9 kg

DRUGS (3)
  1. LEVOTHROID [Concomitant]
     Active Substance: LEVOTHYROXINE SODIUM
     Indication: PRODUCT USED FOR UNKNOWN INDICATION
     Dosage: 137 MICROGRAM, QD
     Route: 048
  2. NUVARING [Suspect]
     Active Substance: ETHINYL ESTRADIOL\ETONOGESTREL
     Indication: CONTRACEPTION
     Dosage: 0.12-0.015 MG/24 HR, ONCE A MONTH: LEAVE IN PLACE X 3 WEEKS, REMOVE FOR 1 WEEK
     Route: 067
     Dates: start: 20140916, end: 20150125
  3. SYNTHROID [Concomitant]
     Active Substance: LEVOTHYROXINE SODIUM
     Indication: HYPOTHYROIDISM
     Dosage: 150 MICROGRAM, QD
     Route: 048
     Dates: start: 2005

REACTIONS (15)
  - Pain in extremity [Unknown]
  - Chest pain [Unknown]
  - International normalised ratio abnormal [Unknown]
  - Impaired fasting glucose [Unknown]
  - Gastrooesophageal reflux disease [Unknown]
  - Obesity [Unknown]
  - Abnormal weight gain [Unknown]
  - Oedema peripheral [Unknown]
  - Vitamin D deficiency [Unknown]
  - Pulmonary embolism [Not Recovered/Not Resolved]
  - Venous thrombosis [Unknown]
  - Autoimmune thyroiditis [Unknown]
  - Product use in unapproved indication [Recovered/Resolved]
  - Fatigue [Unknown]
  - Goitre [Unknown]

NARRATIVE: CASE EVENT DATE: 20141102
